FAERS Safety Report 6447463-8 (Version None)
Quarter: 2009Q4

REPORT INFORMATION
  Report Type: 
  Country: None (occurrence: None)
  Receive Date: 20091119
  Receipt Date: 20091116
  Transmission Date: 20100525
  Serious: Yes (Death, Hospitalization)
  Sender: FDA-Public Use
  Company Number: AU-ASTRAZENECA-2009SE26559

PATIENT
  Age: 64 Year
  Sex: Male

DRUGS (3)
  1. LOSEC [Suspect]
     Indication: GASTROINTESTINAL ULCER HAEMORRHAGE
     Route: 048
  2. TEGRETOL [Concomitant]
  3. COLOXYL [Concomitant]
     Dosage: OCCASSIONALLY

REACTIONS (4)
  - GENERAL PHYSICAL HEALTH DETERIORATION [None]
  - NUTRITIONAL CONDITION ABNORMAL [None]
  - OESOPHAGEAL HAEMORRHAGE [None]
  - PNEUMONIA ASPIRATION [None]
